FAERS Safety Report 7470630-1 (Version None)
Quarter: 2011Q2

REPORT INFORMATION
  Report Type: 
  Country: None (occurrence: None)
  Receive Date: 20110510
  Receipt Date: 20100910
  Transmission Date: 20111010
  Serious: No
  Sender: FDA-Public Use
  Company Number: US-ALEXION-A201001400

PATIENT
  Age: 17 Year
  Sex: Male

DRUGS (1)
  1. SOLIRIS [Suspect]
     Indication: DOWLING-DEGOS DISEASE
     Dosage: UNK
     Route: 042

REACTIONS (3)
  - CYSTITIS HAEMORRHAGIC [None]
  - CONDITION AGGRAVATED [None]
  - DOWLING-DEGOS DISEASE [None]
